FAERS Safety Report 19034276 (Version 1)
Quarter: 2021Q1

REPORT INFORMATION
  Report Type: Spontaneous
  Country: NZ (occurrence: NZ)
  Receive Date: 20210320
  Receipt Date: 20210320
  Transmission Date: 20210420
  Serious: Yes (Other)
  Sender: FDA-Public Use
  Company Number: NZ-SA-2021SA083885

PATIENT
  Age: 59 Year
  Sex: Male

DRUGS (4)
  1. CLOPIDOGREL BISULFATE. [Suspect]
     Active Substance: CLOPIDOGREL BISULFATE
     Route: 048
  2. INSULIN [Concomitant]
     Active Substance: INSULIN NOS
  3. DICLOFENAC [Suspect]
     Active Substance: DICLOFENAC
     Route: 048
  4. ASPIRINE [Suspect]
     Active Substance: ASPIRIN
     Route: 048

REACTIONS (3)
  - Duodenal ulcer haemorrhage [Unknown]
  - Duodenitis [Unknown]
  - Gastric ulcer haemorrhage [Unknown]
